FAERS Safety Report 7905019-1 (Version None)
Quarter: 2011Q4

REPORT INFORMATION
  Report Type: 
  Country: None (occurrence: None)
  Receive Date: 20111109
  Receipt Date: 20111103
  Transmission Date: 20120403
  Serious: No
  Sender: FDA-Public Use
  Company Number: PHHY2011MX86051

PATIENT
  Sex: Female

DRUGS (3)
  1. NEUROBION [Concomitant]
     Indication: STRESS
     Dosage: 2 DF, DAILY
     Dates: start: 20110801
  2. OMEPRAZOLE [Concomitant]
     Dosage: 1 DF A DAY
  3. DIOVAN HCT [Suspect]
     Indication: HYPERTENSION
     Dosage: 1 DF (160/12.5 MG), DAILY
     Dates: start: 20110801, end: 20111029

REACTIONS (2)
  - ABDOMINAL DISTENSION [None]
  - OEDEMA PERIPHERAL [None]
